FAERS Safety Report 7325801-1 (Version None)
Quarter: 2011Q1

REPORT INFORMATION
  Report Type: 
  Country: None (occurrence: None)
  Receive Date: 20110302
  Receipt Date: 20110228
  Transmission Date: 20110831
  Serious: Yes (Other)
  Sender: FDA-Public Use
  Company Number: ZA-ABBOTT-11P-143-0708147-00

PATIENT
  Age: 4 Year
  Sex: Female

DRUGS (1)
  1. EPILIM SYRUP [Suspect]
     Indication: EPILEPSY
     Route: 048
     Dates: start: 20080101, end: 20110201

REACTIONS (4)
  - WEIGHT INCREASED [None]
  - SCREAMING [None]
  - AGGRESSION [None]
  - CRYING [None]
